FAERS Safety Report 6385948-3 (Version None)
Quarter: 2009Q4

REPORT INFORMATION
  Report Type: 
  Country: None (occurrence: None)
  Receive Date: 20091002
  Receipt Date: 20090108
  Transmission Date: 20100525
  Serious: No
  Sender: FDA-Public Use
  Company Number: US-ASTRAZENECA-2009UW00733

PATIENT
  Age: 52 Year
  Sex: Female

DRUGS (2)
  1. ARIMIDEX [Suspect]
     Indication: BREAST CANCER RECURRENT
     Dosage: 1 MG
     Route: 048
     Dates: start: 20081226
  2. TAPAZOLE [Concomitant]
     Indication: HYPOTHYROIDISM

REACTIONS (1)
  - THYROID FUNCTION TEST ABNORMAL [None]
